FAERS Safety Report 6832163-2 (Version None)
Quarter: 2010Q3

REPORT INFORMATION
  Report Type: 
  Country: None (occurrence: None)
  Receive Date: 20100712
  Receipt Date: 20100705
  Transmission Date: 20110219
  Serious: Yes (Hospitalization)
  Sender: FDA-Public Use
  Company Number: FR-ASTRAZENECA-2010SE31509

PATIENT
  Age: 20340 Day
  Sex: Male

DRUGS (5)
  1. NEXIUM [Suspect]
     Route: 048
     Dates: start: 20100319, end: 20100512
  2. TAHOR [Suspect]
     Route: 048
     Dates: start: 20100319, end: 20100512
  3. COVERSYL [Concomitant]
     Dates: start: 20100319
  4. FLUDEX LP [Concomitant]
     Dates: start: 20100319
  5. IMOVANE [Concomitant]
     Dosage: 1 TABLET DAILY
     Dates: start: 20100319

REACTIONS (1)
  - MIXED LIVER INJURY [None]
